FAERS Safety Report 20815381 (Version 1)
Quarter: 2022Q2

REPORT INFORMATION
  Report Type: Spontaneous
  Country: US (occurrence: US)
  Receive Date: 20220511
  Receipt Date: 20220511
  Transmission Date: 20220721
  Serious: No
  Sender: FDA-Public Use
  Company Number: US-BAYER-2022A065449

PATIENT
  Age: 62 Year

DRUGS (1)
  1. ALEVE [Suspect]
     Active Substance: NAPROXEN SODIUM
     Route: 048

REACTIONS (3)
  - Abdominal pain upper [Unknown]
  - Dyspnoea [Unknown]
  - Dyspepsia [Unknown]
